FAERS Safety Report 7378987-7 (Version None)
Quarter: 2011Q1

REPORT INFORMATION
  Report Type: 
  Country: None (occurrence: None)
  Receive Date: 20110328
  Receipt Date: 20110317
  Transmission Date: 20110831
  Serious: Yes (Other)
  Sender: FDA-Public Use
  Company Number: CA-ELI_LILLY_AND_COMPANY-CA201103005919

PATIENT
  Age: 70 Year
  Sex: Female

DRUGS (5)
  1. SLEEPING [Concomitant]
  2. PARIET [Concomitant]
     Route: 065
  3. FORTEO [Suspect]
     Indication: OSTEOPOROSIS
     Dosage: 20 UG, QD
     Route: 058
     Dates: start: 20100920
  4. WARFARIN [Concomitant]
     Route: 065
  5. THYROID [Concomitant]
     Route: 065

REACTIONS (7)
  - HEART RATE INCREASED [None]
  - CARDIAC ABLATION [None]
  - BLOOD PRESSURE INCREASED [None]
  - DYSPNOEA [None]
  - MUSCULOSKELETAL PAIN [None]
  - MUSCLE SPASMS [None]
  - PAIN [None]
